FAERS Safety Report 24114459 (Version 1)
Quarter: 2024Q3

REPORT INFORMATION
  Report Type: Spontaneous
  Country: IT (occurrence: IT)
  Receive Date: 20240720
  Receipt Date: 20240720
  Transmission Date: 20241017
  Serious: Yes (Hospitalization)
  Sender: RANBAXY
  Company Number: IT-MINISAL02-982679

PATIENT
  Age: 53 Year
  Sex: Male
  Weight: 91 kg

DRUGS (8)
  1. LORAZEPAM [Suspect]
     Active Substance: LORAZEPAM
     Indication: Agitation
     Dosage: 3 BLISTERS PER DAY OF LORAZEPAM 2.5 MG = 75 MG PER DAY
     Route: 048
     Dates: end: 20240329
  2. PERPHENAZINE [Concomitant]
     Active Substance: PERPHENAZINE
     Indication: Schizophrenia
     Dosage: 24 MILLIGRAM, 8 MG 3 VV DIE
     Route: 048
  3. CITALOPRAM [Concomitant]
     Active Substance: CITALOPRAM\CITALOPRAM HYDROBROMIDE
     Indication: Depression
     Dosage: 20 MILLIGRAM, 20 MG 1 VV DIE
     Route: 048
  4. GABAPENTIN [Concomitant]
     Active Substance: GABAPENTIN
     Indication: Product used for unknown indication
     Dosage: 1500 MILLIGRAM, 500 MG RP 3 VV DIE
     Route: 048
  5. QUETIAPINE [Concomitant]
     Active Substance: QUETIAPINE
     Indication: Agitation
     Dosage: 600 MILLIGRAM, 200 MG RP 3 TIMES A DAY AND 25 MG AS NEEDED
     Route: 048
  6. VALPROIC ACID [Concomitant]
     Active Substance: VALPROIC ACID
     Indication: Epilepsy
     Dosage: 1500 MILLIGRAM, 500 MG RP 3 VV DIE
     Route: 048
  7. METFORMIN [Concomitant]
     Active Substance: METFORMIN HYDROCHLORIDE
     Indication: Type 2 diabetes mellitus
     Dosage: UNK
     Route: 048
  8. ASENAPINE [Concomitant]
     Active Substance: ASENAPINE
     Indication: Schizophrenia
     Dosage: 5 MILLIGRAM, 5 MG 1 VV DIE
     Route: 048

REACTIONS (1)
  - Drug withdrawal syndrome [Recovering/Resolving]

NARRATIVE: CASE EVENT DATE: 20240402
